FAERS Safety Report 20445494 (Version 3)
Quarter: 2022Q3

REPORT INFORMATION
  Report Type: Report from Study
  Country: US (occurrence: US)
  Receive Date: 20220208
  Receipt Date: 20220705
  Transmission Date: 20221026
  Serious: Yes (Hospitalization)
  Sender: FDA-Public Use
  Company Number: US-BIONICAL EMAS-2022ETO000019

PATIENT

DRUGS (2)
  1. ALKINDI SPRINKLE [Suspect]
     Active Substance: HYDROCORTISONE
     Indication: Adrenal insufficiency
     Dosage: 0.5 MG, TID, 1MG IN THE MORNING, 0.5 MG IN THE AFTERNOON, AND 0.5MG IN THE EVENING
     Route: 048
     Dates: start: 20211229
  2. NOVAFERRUM [Concomitant]
     Active Substance: ASCORBIC ACID\FOLIC ACID\IRON
     Indication: Product used for unknown indication
     Dosage: UNK

REACTIONS (5)
  - Diabetes insipidus [Unknown]
  - Agitation [Unknown]
  - Blood sodium increased [Unknown]
  - COVID-19 [Recovering/Resolving]
  - Insomnia [Unknown]

NARRATIVE: CASE EVENT DATE: 20220101
